FAERS Safety Report 22071306 (Version 1)
Quarter: 2023Q1

REPORT INFORMATION
  Report Type: Spontaneous
  Country: US (occurrence: None)
  Receive Date: 20230307
  Receipt Date: 20230307
  Transmission Date: 20230418
  Serious: Yes (Hospitalization)
  Sender: FDA-Public Use
  Company Number: None

PATIENT
  Age: 57 Year
  Sex: Female
  Weight: 100.7 kg

DRUGS (2)
  1. TECARTUS [Suspect]
     Active Substance: BREXUCABTAGENE AUTOLEUCEL
     Indication: B precursor type acute leukaemia
     Dates: start: 20230110, end: 20230210
  2. TECARTUS [Concomitant]
     Active Substance: BREXUCABTAGENE AUTOLEUCEL
     Dates: start: 20230110, end: 20230110

REACTIONS (1)
  - Facial paralysis [None]

NARRATIVE: CASE EVENT DATE: 20230303
